FAERS Safety Report 15287333 (Version 2)
Quarter: 2018Q3

REPORT INFORMATION
  Report Type: Spontaneous
  Country: DE (occurrence: DE)
  Receive Date: 20180817
  Receipt Date: 20180912
  Transmission Date: 20181010
  Serious: Yes (Life-Threatening, Other)
  Sender: FDA-Public Use
  Company Number: DE-AUROBINDO-AUR-APL-2018-028724

PATIENT
  Age: 18 Year
  Sex: Female

DRUGS (7)
  1. CELECOXIB. [Suspect]
     Active Substance: CELECOXIB
     Indication: EWING^S SARCOMA
     Dosage: 200 MILLIGRAM
     Route: 048
  2. EPIRUBICIN SOLUTION FOR INJECTION [Suspect]
     Active Substance: EPIRUBICIN
     Dosage: UNK, FULL DOSE AFTER THE END OF RADIOTHERAPY ()
     Route: 065
  3. IMATINIB [Suspect]
     Active Substance: IMATINIB
     Dosage: 50% DOSE REDUCTION
     Route: 065
  4. IMATINIB [Suspect]
     Active Substance: IMATINIB
     Indication: EWING^S SARCOMA
     Dosage: 400 MILLIGRAM
     Route: 048
  5. EPIRUBICIN SOLUTION FOR INJECTION [Suspect]
     Active Substance: EPIRUBICIN
     Indication: EWING^S SARCOMA
     Dosage: 100 MILLIGRAM/SQ. METER
     Route: 042
  6. IMATINIB [Suspect]
     Active Substance: IMATINIB
     Indication: SYSTEMIC SCLERODERMA
     Dosage: 200 MILLIGRAM
     Route: 048
  7. DASATINIB. [Suspect]
     Active Substance: DASATINIB
     Indication: EWING^S SARCOMA
     Dosage: 100 MILLIGRAM
     Route: 048

REACTIONS (11)
  - Nausea [Unknown]
  - Vomiting [Unknown]
  - Neutropenia [Unknown]
  - Product use in unapproved indication [Unknown]
  - Lymphopenia [Unknown]
  - Anxiety [Unknown]
  - Metastases to bone [Unknown]
  - Thrombocytopenia [Unknown]
  - Depression [Unknown]
  - Malignant neoplasm progression [Unknown]
  - Anaemia [Unknown]
